FAERS Safety Report 9714188 (Version 1)
Quarter: 2013Q4

REPORT INFORMATION
  Report Type: Spontaneous
  Country: US (occurrence: US)
  Receive Date: 20131126
  Receipt Date: 20131126
  Transmission Date: 20140711
  Serious: Yes (Other)
  Sender: FDA-Public Use
  Company Number: US-GILEAD-2008-0019143

PATIENT
  Age: 60 Year
  Sex: Female
  Weight: 127.91 kg

DRUGS (5)
  1. LETAIRIS [Suspect]
     Indication: PULMONARY HYPERTENSION
     Route: 048
     Dates: start: 20081102
  2. DIOVAN [Concomitant]
  3. LEVOTHYROXIN [Concomitant]
  4. LASIX [Concomitant]
  5. COUMADIN [Concomitant]

REACTIONS (3)
  - Swelling [Recovered/Resolved]
  - Oedema [Recovered/Resolved]
  - Flushing [Recovered/Resolved]
